FAERS Safety Report 24539990 (Version 1)
Quarter: 2024Q4

REPORT INFORMATION
  Report Type: Spontaneous
  Country: SK (occurrence: SK)
  Receive Date: 20241023
  Receipt Date: 20241023
  Transmission Date: 20250115
  Serious: Yes (Other)
  Sender: BRISTOL-MYERS SQUIBB COMPANY
  Company Number: SK-JNJFOC-20240903714

PATIENT
  Age: 6 Decade
  Sex: Male

DRUGS (8)
  1. THALIDOMIDE [Suspect]
     Active Substance: THALIDOMIDE
     Indication: Product used for unknown indication
     Dosage: GIVEN 4 CYCLES
     Dates: start: 20230515, end: 20230904
  2. THALIDOMIDE [Suspect]
     Active Substance: THALIDOMIDE
     Dosage: 5TH AND 6TH CYCLE.
     Dates: start: 20240415
  3. DARATUMUMAB [Suspect]
     Active Substance: DARATUMUMAB
     Indication: Product used for unknown indication
     Dosage: GIVEN 4 CYCLES
     Dates: start: 20230515, end: 20230904
  4. DARATUMUMAB [Suspect]
     Active Substance: DARATUMUMAB
     Dosage: 5TH AND 6TH CYCLE.
     Dates: start: 20240415
  5. BORTEZOMIB [Suspect]
     Active Substance: BORTEZOMIB
     Indication: Product used for unknown indication
     Dosage: GIVEN 4 CYCLES
     Dates: start: 20230515, end: 20230904
  6. BORTEZOMIB [Suspect]
     Active Substance: BORTEZOMIB
     Dosage: 5TH AND 6TH CYCLE.
     Dates: start: 20240415
  7. DEXAMETHASONE [Suspect]
     Active Substance: DEXAMETHASONE
     Indication: Product used for unknown indication
     Dosage: GIVEN 4 CYCLES
     Dates: start: 20230515, end: 20230904
  8. DEXAMETHASONE [Suspect]
     Active Substance: DEXAMETHASONE
     Dosage: 5TH AND 6TH CYCLE.
     Dates: start: 20240415

REACTIONS (2)
  - Neutropenia [Unknown]
  - Blood immunoglobulin G decreased [Unknown]

NARRATIVE: CASE EVENT DATE: 20230612
